FAERS Safety Report 4443501-2 (Version None)
Quarter: 2004Q3

REPORT INFORMATION
  Report Type: 
  Country: None (occurrence: None)
  Receive Date: 20040908
  Receipt Date: 20040831
  Transmission Date: 20050211
  Serious: Yes (Hospitalization)
  Sender: FDA-Public Use
  Company Number: US-BRISTOL-MYERS SQUIBB COMPANY-12688271

PATIENT
  Sex: Male

DRUGS (2)
  1. TEQUIN [Suspect]
     Indication: PNEUMONIA
     Route: 048
  2. FUROSEMIDE [Suspect]
     Route: 048

REACTIONS (1)
  - DEHYDRATION [None]
